FAERS Safety Report 24871314 (Version 2)
Quarter: 2025Q1

REPORT INFORMATION
  Report Type: Report from Study
  Country: JP (occurrence: JP)
  Receive Date: 20250122
  Receipt Date: 20250303
  Transmission Date: 20250409
  Serious: Yes (Hospitalization, Other)
  Sender: TAKEDA
  Company Number: JP-TAKEDA-2022TJP050672

PATIENT
  Age: 14 Year
  Sex: Female
  Weight: 22.8 kg

DRUGS (20)
  1. TEDUGLUTIDE [Suspect]
     Active Substance: TEDUGLUTIDE
     Indication: Short-bowel syndrome
     Dates: start: 20220411, end: 20221024
  2. TEDUGLUTIDE [Suspect]
     Active Substance: TEDUGLUTIDE
  3. TEDUGLUTIDE [Suspect]
     Active Substance: TEDUGLUTIDE
  4. TEDUGLUTIDE [Suspect]
     Active Substance: TEDUGLUTIDE
  5. ASELEND [Concomitant]
     Indication: Short-bowel syndrome
     Dosage: UNK UNK, 1/WEEK
  6. LEVOCARNITINE [Concomitant]
     Active Substance: LEVOCARNITINE
     Indication: Short-bowel syndrome
  7. SOYBEAN OIL [Concomitant]
     Active Substance: SOYBEAN OIL
     Indication: Short-bowel syndrome
     Dosage: UNK UNK, 1/WEEK
  8. BIO-THREE [Concomitant]
     Active Substance: HERBALS
     Indication: Short-bowel syndrome
  9. URSO [Concomitant]
     Active Substance: URSODIOL
     Indication: Short-bowel syndrome
  10. ZINC [Concomitant]
     Active Substance: ZINC
     Indication: Short-bowel syndrome
  11. LACTULOSE [Concomitant]
     Active Substance: LACTULOSE
     Indication: Short-bowel syndrome
  12. CHOCOLA A [Concomitant]
     Indication: Short-bowel syndrome
  13. ALFAROL [Concomitant]
     Active Substance: ALFACALCIDOL
     Indication: Short-bowel syndrome
  14. COLCHICINE [Concomitant]
     Active Substance: COLCHICINE
  15. PREDNISOLONE [Concomitant]
     Active Substance: PREDNISOLONE
  16. CORTRIL [Concomitant]
     Active Substance: HYDROCORTISONE
  17. SODIUM PHOSPHATE, DIBASIC\SODIUM PHOSPHATE, MONOBASIC [Concomitant]
     Active Substance: SODIUM PHOSPHATE, DIBASIC\SODIUM PHOSPHATE, MONOBASIC
  18. Uralyt u [Concomitant]
  19. METHOTREXATE [Concomitant]
     Active Substance: METHOTREXATE
  20. REMICADE [Concomitant]
     Active Substance: INFLIXIMAB

REACTIONS (4)
  - Vascular device infection [Recovered/Resolved]
  - Abdominal pain [Recovering/Resolving]
  - Puncture site erythema [Recovering/Resolving]
  - Puncture site pruritus [Recovering/Resolving]

NARRATIVE: CASE EVENT DATE: 20220411
